FAERS Safety Report 10157114 (Version 1)
Quarter: 2014Q2

REPORT INFORMATION
  Report Type: Spontaneous
  Country: US (occurrence: US)
  Receive Date: 20140507
  Receipt Date: 20140507
  Transmission Date: 20141212
  Serious: Yes (Other)
  Sender: FDA-Public Use
  Company Number: US-SA-2014SA058793

PATIENT
  Sex: 0

DRUGS (1)
  1. NASACORT ALLERGY [Suspect]
     Indication: PRODUCT USED FOR UNKNOWN INDICATION
     Route: 065

REACTIONS (5)
  - Hypertension [Unknown]
  - Urticaria [Unknown]
  - Restlessness [Unknown]
  - Insomnia [Unknown]
  - Dizziness [Unknown]
